FAERS Safety Report 6888474-8 (Version None)
Quarter: 2010Q3

REPORT INFORMATION
  Report Type: 
  Country: None (occurrence: None)
  Receive Date: 20100730
  Receipt Date: 20100719
  Transmission Date: 20110219
  Serious: Yes (Other)
  Sender: FDA-Public Use
  Company Number: PHHY2010BR47335

PATIENT
  Age: 66 Year
  Sex: Female
  Weight: 60 kg

DRUGS (4)
  1. DIOVAN HCT [Suspect]
     Indication: HYPERTENSION
     Dosage: 1 TABLET (320/25 MG) DAILY
     Route: 048
     Dates: start: 20100601
  2. DIOVAN HCT [Suspect]
     Dosage: 1 TABLET (160/12.5 MG) DAILY
     Route: 048
  3. VENALOT (TROXERUTIN/COUMARIN) [Concomitant]
     Dosage: 2-3 TABLETS DAILY
     Route: 048
  4. CLONAZEPAM [Concomitant]
     Indication: INSOMNIA
     Dosage: 1 TABLET DAILY
     Route: 048

REACTIONS (1)
  - RENAL DISORDER [None]
